FAERS Safety Report 15250400 (Version 3)
Quarter: 2022Q1

REPORT INFORMATION
  Report Type: Report from Study
  Country: US (occurrence: None)
  Receive Date: 20180807
  Receipt Date: 20220223
  Transmission Date: 20220423
  Serious: Yes (Hospitalization)
  Sender: FDA-Public Use
  Company Number: US-ROCHE-2165155

PATIENT
  Age: 77 Year
  Sex: Female
  Weight: 67.4 kg

DRUGS (1)
  1. ATEZOLIZUMAB [Suspect]
     Active Substance: ATEZOLIZUMAB
     Indication: Non-small cell lung cancer
     Route: 042
     Dates: start: 20180316

REACTIONS (5)
  - Liver function test increased [Unknown]
  - Fatigue [Unknown]
  - Drug-induced liver injury [Unknown]
  - Blood bilirubin increased [Unknown]
  - Hepatitis [Recovering/Resolving]

NARRATIVE: CASE EVENT DATE: 20180424
